FAERS Safety Report 22099913 (Version 2)
Quarter: 2023Q2

REPORT INFORMATION
  Report Type: Report from Study
  Country: US (occurrence: US)
  Receive Date: 20230315
  Receipt Date: 20230404
  Transmission Date: 20230721
  Serious: Yes (Other)
  Sender: FDA-Public Use
  Company Number: US-BAYER-2023A031413

PATIENT
  Age: 68 Year
  Sex: Female
  Weight: 38.095 kg

DRUGS (3)
  1. ADEMPAS [Suspect]
     Active Substance: RIOCIGUAT
     Indication: Pulmonary arterial hypertension
     Dosage: UNK
     Dates: start: 20200103
  2. ADEMPAS [Suspect]
     Active Substance: RIOCIGUAT
     Indication: Pulmonary arterial hypertension
     Dosage: 1.5 MG, TID
     Route: 048
  3. ADEMPAS [Suspect]
     Active Substance: RIOCIGUAT
     Indication: Pulmonary arterial hypertension
     Dosage: 1 MG, QD
     Route: 048
     Dates: start: 2023

REACTIONS (8)
  - Angina pectoris [None]
  - Impaired gastric emptying [None]
  - Dyspnoea [None]
  - Fatigue [Recovered/Resolved]
  - Extra dose administered [None]
  - Inappropriate schedule of product administration [None]
  - Chest pain [None]
  - Decreased appetite [None]

NARRATIVE: CASE EVENT DATE: 20230101
